FAERS Safety Report 7216907-6 (Version None)
Quarter: 2010Q4

REPORT INFORMATION
  Report Type: 
  Country: None (occurrence: None)
  Receive Date: 20101230
  Receipt Date: 20101216
  Transmission Date: 20110411
  Serious: Yes (Other)
  Sender: FDA-Public Use
  Company Number: 024030

PATIENT
  Sex: Female

DRUGS (5)
  1. KEPPRA [Suspect]
     Dosage: (2500 MG QD)
  2. NOVALGIN /00039501/ (NOVALGIN) (NOT SPECIFIED) [Suspect]
     Dosage: (20 G QD)
  3. PANTOZOL /01263202/ (PANTOZOL) (NOT SPECIFIED) [Suspect]
     Dosage: (10 TABLETS)
  4. NAPROXEN [Suspect]
     Dosage: (10 TABLETS)
  5. BISOPROLOL (BISOPROLOL 10) [Suspect]
     Dosage: (100 MG QD)

REACTIONS (6)
  - DIASTOLIC HYPERTENSION [None]
  - HYPOGLYCAEMIA [None]
  - INCORRECT DOSE ADMINISTERED [None]
  - MIOSIS [None]
  - SOPOR [None]
  - SUICIDE ATTEMPT [None]
